FAERS Safety Report 7879204-1 (Version None)
Quarter: 2011Q4

REPORT INFORMATION
  Report Type: 
  Country: None (occurrence: None)
  Receive Date: 20111101
  Receipt Date: 20111021
  Transmission Date: 20120403
  Serious: Yes (Hospitalization, Other)
  Sender: FDA-Public Use
  Company Number: US-BAYER-2011-029593

PATIENT
  Age: 20 Year
  Sex: Female
  Weight: 60.771 kg

DRUGS (2)
  1. YASMIN [Suspect]
     Indication: CONTRACEPTION
     Dosage: UNK
     Dates: start: 20020827, end: 20040801
  2. TRAMADOL HCL [Concomitant]
     Dosage: 50 MG, UNK

REACTIONS (6)
  - PULMONARY EMBOLISM [None]
  - PAIN [None]
  - INJURY [None]
  - EMOTIONAL DISTRESS [None]
  - FEAR [None]
  - PULMONARY INFARCTION [None]
